FAERS Safety Report 11287582 (Version 2)
Quarter: 2015Q3

REPORT INFORMATION
  Report Type: Spontaneous
  Country: US (occurrence: US)
  Receive Date: 20150721
  Receipt Date: 20150805
  Transmission Date: 20151125
  Serious: Yes (Hospitalization)
  Sender: FDA-Public Use
  Company Number: US-PFIZER INC-2015235995

PATIENT
  Age: 67 Year
  Sex: Female

DRUGS (2)
  1. PROGESTERONE. [Suspect]
     Active Substance: PROGESTERONE
     Indication: PROPHYLAXIS
     Dosage: 200 MG, 1X/DAY
     Dates: start: 20150101, end: 20150104
  2. ESTRADIOL. [Suspect]
     Active Substance: ESTRADIOL
     Indication: DYSPHONIA
     Dosage: 0.5 MG, 1X/DAY
     Dates: start: 20141001

REACTIONS (2)
  - Dysstasia [Recovered/Resolved]
  - Visual impairment [Recovered/Resolved]
